FAERS Safety Report 10573782 (Version 1)
Quarter: 2014Q4

REPORT INFORMATION
  Report Type: Spontaneous
  Country: US (occurrence: None)
  Receive Date: 20141030
  Receipt Date: 20141030
  Transmission Date: 20150529
  Serious: Yes (Hospitalization)
  Sender: FDA-Public Use
  Company Number: PHEH2013US022493

PATIENT
  Age: 68 Year
  Sex: Female
  Weight: 98.6 kg

DRUGS (2)
  1. ZOMETA [Suspect]
     Active Substance: ZOLEDRONIC ACID
     Indication: PLASMA CELL MYELOMA
     Dosage: EVERY 3-4 WEEKS
     Route: 042
     Dates: start: 20130712, end: 20130712
  2. ZOMETA [Suspect]
     Active Substance: ZOLEDRONIC ACID
     Indication: OSTEOLYSIS
     Dosage: EVERY 3-4 WEEKS
     Route: 042
     Dates: start: 20130712, end: 20130712

REACTIONS (3)
  - Pain [None]
  - Hypocalcaemia [None]
  - Back pain [None]

NARRATIVE: CASE EVENT DATE: 20130715
